FAERS Safety Report 16122480 (Version 1)
Quarter: 2019Q2

REPORT INFORMATION
  Report Type: Spontaneous
  Country: US (occurrence: US)
  Receive Date: 20190326
  Receipt Date: 20190326
  Transmission Date: 20190711
  Serious: Yes (Death)
  Sender: FDA-Public Use
  Company Number: None

PATIENT
  Sex: Male

DRUGS (15)
  1. GAMUNEX-C [Suspect]
     Active Substance: HUMAN IMMUNOGLOBULIN G
  2. ADVAIR HFA [Concomitant]
     Active Substance: FLUTICASONE PROPIONATE\SALMETEROL XINAFOATE
  3. ALBUTEROL. [Concomitant]
     Active Substance: ALBUTEROL
  4. IRON [Concomitant]
     Active Substance: IRON
  5. BUSPIRONE [Concomitant]
     Active Substance: BUSPIRONE HYDROCHLORIDE
  6. GAMUNEX-C [Suspect]
     Active Substance: HUMAN IMMUNOGLOBULIN G
     Indication: IMMUNODEFICIENCY COMMON VARIABLE
     Dosage: ?          OTHER FREQUENCY:EVERY 4 WEEKS;?
     Route: 042
     Dates: start: 20140729
  7. CALCIUM [Concomitant]
     Active Substance: CALCIUM
  8. VITAMIN B12 [Concomitant]
     Active Substance: CYANOCOBALAMIN
  9. PREDNISONE. [Concomitant]
     Active Substance: PREDNISONE
  10. ANORO ELLIPTA [Concomitant]
     Active Substance: UMECLIDINIUM BROMIDE\VILANTEROL TRIFENATATE
  11. FISH OIL [Concomitant]
     Active Substance: FISH OIL
  12. ASPIRIN. [Concomitant]
     Active Substance: ASPIRIN
  13. VITAMIN C [Concomitant]
     Active Substance: ASCORBIC ACID
  14. VITAMIN D NOS [Concomitant]
     Active Substance: VITAMIN D NOS
  15. XANAX [Concomitant]
     Active Substance: ALPRAZOLAM

REACTIONS (1)
  - Death [None]
